FAERS Safety Report 19118297 (Version 2)
Quarter: 2021Q2

REPORT INFORMATION
  Report Type: Spontaneous
  Country: JP (occurrence: JP)
  Receive Date: 20210409
  Receipt Date: 20210419
  Transmission Date: 20210717
  Serious: Yes (Other)
  Sender: FDA-Public Use
  Company Number: JP-ARBOR PHARMACEUTICALS, LLC-JP-2021ARB000392

PATIENT
  Age: 58 Year
  Sex: Male

DRUGS (2)
  1. REGNITE [Suspect]
     Active Substance: GABAPENTIN ENACARBIL
     Indication: RESTLESS LEGS SYNDROME
     Dosage: UNK
     Route: 048
  2. REGNITE [Suspect]
     Active Substance: GABAPENTIN ENACARBIL
     Dosage: UNK
     Route: 048

REACTIONS (2)
  - Blood pressure decreased [Recovered/Resolved]
  - Shock [Recovered/Resolved]
